FAERS Safety Report 22085388 (Version 1)
Quarter: 2023Q1

REPORT INFORMATION
  Report Type: Spontaneous
  Country: NL (occurrence: NL)
  Receive Date: 20230310
  Receipt Date: 20230310
  Transmission Date: 20230418
  Serious: Yes (Hospitalization, Other)
  Sender: FDA-Public Use
  Company Number: None

PATIENT
  Sex: Female
  Weight: 60 kg

DRUGS (4)
  1. ENOXAPARIN SODIUM [Suspect]
     Active Substance: ENOXAPARIN SODIUM
     Indication: Prophylaxis
     Dosage: 1X PER DAY 1 PIECE
     Dates: start: 20221210, end: 20221211
  2. CLEMASTINE [Concomitant]
     Active Substance: CLEMASTINE
     Dosage: TABLET, 1 MG (MILLIGRAM)
  3. BETAMETHASONE VALERATE [Concomitant]
     Active Substance: BETAMETHASONE VALERATE
     Dosage: CREME, 1 MG/G (MILLIGRAM PER GRAM)
  4. CLEMASTINE [Concomitant]
     Active Substance: CLEMASTINE
     Dosage: INJECTION FLUID, 1 MG/ML (MILLIGRAMS PER MILLILITER)

REACTIONS (2)
  - Toxic skin eruption [Recovered/Resolved]
  - Pyrexia [Unknown]
